FAERS Safety Report 5773641-7 (Version None)
Quarter: 2008Q2

REPORT INFORMATION
  Report Type: 
  Country: None (occurrence: None)
  Receive Date: 20080616
  Receipt Date: 20080605
  Transmission Date: 20081010
  Serious: Yes (Other)
  Sender: FDA-Public Use
  Company Number: IL-JNJFOC-20080601591

PATIENT
  Age: 9 Month
  Sex: Male

DRUGS (1)
  1. REMICADE [Suspect]
     Indication: TRANSMISSION OF DRUG VIA SEMEN
     Route: 015

REACTIONS (1)
  - OCULAR NEOPLASM [None]
